FAERS Safety Report 16238019 (Version 5)
Quarter: 2019Q2

REPORT INFORMATION
  Report Type: Spontaneous
  Country: US (occurrence: US)
  Receive Date: 20190425
  Receipt Date: 20190626
  Transmission Date: 20190711
  Serious: No
  Sender: FDA-Public Use
  Company Number: US-PFIZER INC-2019171817

PATIENT
  Age: 50 Year
  Sex: Female
  Weight: 86.18 kg

DRUGS (3)
  1. CHANTIX [Suspect]
     Active Substance: VARENICLINE TARTRATE
     Dosage: 1 MG, 2X/DAY [1 BLUE TABLET BY MOUTH IN THE MORNING AND 1 TABLET BY MOUTH IN THE EVENING]
     Route: 048
     Dates: start: 20190102
  2. WELLBUTRIN [Concomitant]
     Active Substance: BUPROPION HYDROCHLORIDE
     Indication: SMOKING CESSATION THERAPY
     Dosage: 450 MG, DAILY
     Route: 048
     Dates: start: 201811
  3. CHANTIX [Suspect]
     Active Substance: VARENICLINE TARTRATE
     Indication: SMOKING CESSATION THERAPY
     Dosage: 0.5 MG, 2X/DAY (STARTING MONTH BOX 0.5 MG (11)-1MG (42) TABLETS IN DOSE PACK)
     Route: 048

REACTIONS (1)
  - Tobacco user [Recovered/Resolved]
